FAERS Safety Report 8570794-2 (Version None)
Quarter: 2012Q3

REPORT INFORMATION
  Report Type: 
  Country: None (occurrence: None)
  Receive Date: 20120806
  Receipt Date: 20120727
  Transmission Date: 20120928
  Serious: No
  Sender: FDA-Public Use
  Company Number: US-009507513-1207USA012182

PATIENT

DRUGS (4)
  1. PULMICORT [Suspect]
     Route: 055
  2. FORADIL [Suspect]
     Route: 055
  3. SPIRIVA [Concomitant]
  4. ASMANEX TWISTHALER [Suspect]

REACTIONS (1)
  - BRONCHOPULMONARY ASPERGILLOSIS [None]
